FAERS Safety Report 14199158 (Version 5)
Quarter: 2018Q2

REPORT INFORMATION
  Report Type: Report from Study
  Country: CA (occurrence: CA)
  Receive Date: 20171117
  Receipt Date: 20180401
  Transmission Date: 20180711
  Serious: Yes (Other)
  Sender: FDA-Public Use
  Company Number: PHHY2017CA169682

PATIENT
  Sex: Female

DRUGS (3)
  1. GILENYA [Suspect]
     Active Substance: FINGOLIMOD HYDROCHLORIDE
     Indication: MULTIPLE SCLEROSIS
     Dosage: 0.5 MG, QD
     Route: 048
     Dates: start: 20170201, end: 20180201
  2. GILENYA [Suspect]
     Active Substance: FINGOLIMOD HYDROCHLORIDE
     Indication: DISTURBANCE IN ATTENTION
  3. GILENYA [Suspect]
     Active Substance: FINGOLIMOD HYDROCHLORIDE
     Indication: READING DISORDER

REACTIONS (14)
  - Dysgraphia [Unknown]
  - Sciatica [Unknown]
  - Tremor [Unknown]
  - Pain in extremity [Unknown]
  - Hemiparesis [Not Recovered/Not Resolved]
  - Dysarthria [Unknown]
  - Multiple sclerosis [Not Recovered/Not Resolved]
  - Thinking abnormal [Unknown]
  - Incontinence [Unknown]
  - Limb discomfort [Unknown]
  - Aphasia [Unknown]
  - Fatigue [Unknown]
  - Diplopia [Unknown]
  - Product use in unapproved indication [Unknown]
